FAERS Safety Report 8974270 (Version 1)
Quarter: 2012Q4

REPORT INFORMATION
  Report Type: Spontaneous
  Country: US (occurrence: None)
  Receive Date: 20121212
  Receipt Date: 20121212
  Transmission Date: 20130627
  Serious: Yes (Other)
  Sender: FDA-Public Use
  Company Number: 2012AP004179

PATIENT
  Age: 64 Year
  Sex: Male

DRUGS (6)
  1. LEVOFLOXACIN [Suspect]
     Indication: RESPIRATORY INFECTION
     Dosage: 5 day
  2. CIPROFLOXACIN [Concomitant]
  3. FELODIPINE [Concomitant]
  4. HYDROCHLOROTHIAZIDE [Concomitant]
  5. TERAZOSIN [Concomitant]
  6. VARDENAFIL [Concomitant]

REACTIONS (3)
  - Leukocytoclastic vasculitis [None]
  - Cellulitis [None]
  - Skin ulcer [None]
